FAERS Safety Report 15366987 (Version 1)
Quarter: 2018Q3

REPORT INFORMATION
  Report Type: Spontaneous
  Country: US (occurrence: US)
  Receive Date: 20180902
  Receipt Date: 20180902
  Transmission Date: 20181010
  Serious: Yes (Life-Threatening)
  Sender: FDA-Public Use
  Company Number: None

PATIENT
  Age: 40 Year
  Sex: Female
  Weight: 99 kg

DRUGS (11)
  1. CELECOXIB. [Suspect]
     Active Substance: CELECOXIB
     Indication: FIBROMYALGIA
     Dosage: ?          QUANTITY:1 DF DOSAGE FORM;?
     Route: 048
     Dates: start: 20180515
  2. BUPROPION. [Concomitant]
     Active Substance: BUPROPION
  3. CRANBERRY SUPPLEMENTS [Concomitant]
  4. VITAMIN D [Concomitant]
     Active Substance: CHOLECALCIFEROL
  5. TOPIRAMATE. [Concomitant]
     Active Substance: TOPIRAMATE
  6. CELECOXIB 200MG [Suspect]
     Active Substance: CELECOXIB
     Indication: DYSMENORRHOEA
  7. GABAPENTIN. [Concomitant]
     Active Substance: GABAPENTIN
  8. DESLORATADINE. [Concomitant]
     Active Substance: DESLORATADINE
  9. LINZESS [Concomitant]
     Active Substance: LINACLOTIDE
  10. ZYRTEC [Concomitant]
     Active Substance: CETIRIZINE HYDROCHLORIDE
  11. MAGNESIUM [Concomitant]
     Active Substance: MAGNESIUM

REACTIONS (2)
  - Chronic kidney disease [None]
  - Acute kidney injury [None]

NARRATIVE: CASE EVENT DATE: 20180830
